FAERS Safety Report 8501257-8 (Version None)
Quarter: 2012Q3

REPORT INFORMATION
  Report Type: 
  Country: None (occurrence: None)
  Receive Date: 20120710
  Receipt Date: 20120703
  Transmission Date: 20120928
  Serious: Yes (Hospitalization, Other)
  Sender: FDA-Public Use
  Company Number: US-ABBOTT-12P-163-0949879-00

PATIENT
  Sex: Female
  Weight: 64.922 kg

DRUGS (9)
  1. PNEUMONIA VACCINE [Concomitant]
     Indication: PRODUCT USED FOR UNKNOWN INDICATION
  2. FLU VACCINE [Concomitant]
     Indication: PRODUCT USED FOR UNKNOWN INDICATION
  3. HUMIRA [Suspect]
     Dates: start: 20100819
  4. ULTRAM [Concomitant]
     Indication: RHEUMATOID ARTHRITIS
  5. HUMIRA [Suspect]
     Indication: RHEUMATOID ARTHRITIS
     Route: 058
     Dates: start: 20050101
  6. HUMIRA [Suspect]
     Route: 058
  7. METHOTREXATE [Concomitant]
     Indication: RHEUMATOID ARTHRITIS
  8. HYDROCODONE [Concomitant]
     Indication: RHEUMATOID ARTHRITIS
  9. CIPROFLOXACIN HCL [Suspect]
     Indication: PNEUMONIA
     Dates: start: 20120601

REACTIONS (14)
  - ASPIRATION [None]
  - JOINT SWELLING [None]
  - FUNGAL INFECTION [None]
  - VULVOVAGINAL MYCOTIC INFECTION [None]
  - ABDOMINAL PAIN [None]
  - PNEUMONIA [None]
  - PROCEDURAL HAEMORRHAGE [None]
  - APHAGIA [None]
  - FUNGAL SKIN INFECTION [None]
  - WEIGHT DECREASED [None]
  - AORTIC ANEURYSM [None]
  - ORAL FUNGAL INFECTION [None]
  - INFECTION [None]
  - WHITE BLOOD CELL COUNT INCREASED [None]
